FAERS Safety Report 5065701-3 (Version None)
Quarter: 2006Q3

REPORT INFORMATION
  Report Type: 
  Country: None (occurrence: None)
  Receive Date: 20060731
  Receipt Date: 20060726
  Transmission Date: 20061208
  Serious: Yes (Disabling, Other)
  Sender: FDA-Public Use
  Company Number: US-MERCK-0607USA05139

PATIENT
  Age: 55 Year
  Sex: Female

DRUGS (2)
  1. FOSAMAX [Suspect]
     Indication: OSTEOPOROSIS
     Route: 048
     Dates: start: 19960101, end: 20020101
  2. FOSAMAX [Suspect]
     Route: 048
     Dates: start: 20020101, end: 20060101

REACTIONS (5)
  - GINGIVAL RECESSION [None]
  - OSTEOMYELITIS [None]
  - PAIN IN JAW [None]
  - RESORPTION BONE INCREASED [None]
  - TOOTH LOSS [None]
